FAERS Safety Report 5102241-7 (Version None)
Quarter: 2006Q3

REPORT INFORMATION
  Report Type: 
  Country: None (occurrence: None)
  Receive Date: 20060912
  Receipt Date: 20060831
  Transmission Date: 20061208
  Serious: Yes (Other)
  Sender: FDA-Public Use
  Company Number: US-JNJFOC-20060900832

PATIENT
  Sex: Male
  Weight: 39.46 kg

DRUGS (1)
  1. CONCERTA [Suspect]
     Indication: ATTENTION DEFICIT/HYPERACTIVITY DISORDER
     Route: 048

REACTIONS (4)
  - AFFECT LABILITY [None]
  - GROWTH RETARDATION [None]
  - INSOMNIA [None]
  - LOGORRHOEA [None]
